FAERS Safety Report 6803459-5 (Version None)
Quarter: 2010Q2

REPORT INFORMATION
  Report Type: 
  Country: None (occurrence: None)
  Receive Date: 20100628
  Receipt Date: 20100622
  Transmission Date: 20101027
  Serious: Yes (Disabling)
  Sender: FDA-Public Use
  Company Number: BR-ROCHE-711248

PATIENT
  Sex: Female

DRUGS (3)
  1. AVASTIN [Suspect]
     Route: 031
  2. LIPITOR [Concomitant]
     Dosage: HALF TABLET ONCE A DAY
     Dates: start: 20050621
  3. RIVOTRIL [Concomitant]

REACTIONS (2)
  - BLINDNESS [None]
  - RETINAL SCAR [None]
